FAERS Safety Report 8812509 (Version 2)
Quarter: 2012Q4

REPORT INFORMATION
  Report Type: 
  Country: GB (occurrence: GB)
  Receive Date: 20120927
  Receipt Date: 20121010
  Transmission Date: 20130627
  Serious: Yes (Death)
  Sender: FDA-Public Use
  Company Number: GB-PFIZER INC-2012237103

PATIENT
  Age: 71 Year
  Sex: Male

DRUGS (4)
  1. RAMIPRIL [Suspect]
     Indication: MYOCARDIAL INFARCTION
     Dosage: UNK, 1x/day
     Route: 065
     Dates: end: 20120816
  2. BISOPROLOL [Concomitant]
     Indication: PRODUCT USED FOR UNKNOWN INDICATION
     Dosage: UNK
  3. ASPIRIN [Concomitant]
     Indication: PRODUCT USED FOR UNKNOWN INDICATION
     Dosage: UNK
  4. SIMVASTATIN [Concomitant]
     Indication: BLOOD CHOLESTEROL INCREASED
     Dosage: UNK

REACTIONS (3)
  - Acute myeloid leukaemia [Fatal]
  - Sepsis [Fatal]
  - Multi-organ failure [Fatal]
